FAERS Safety Report 8843111 (Version 1)
Quarter: 2012Q4

REPORT INFORMATION
  Report Type: 
  Country: US (occurrence: US)
  Receive Date: 20121016
  Receipt Date: 20121016
  Transmission Date: 20130627
  Serious: Yes (Other)
  Sender: FDA-Public Use
  Company Number: US-ROCHE-1122325

PATIENT
  Sex: Female

DRUGS (3)
  1. NUTROPIN [Suspect]
     Indication: FOETAL GROWTH RESTRICTION
     Route: 065
  2. NUTROPIN [Suspect]
     Indication: BODY HEIGHT BELOW NORMAL
  3. NUTROPIN [Suspect]
     Indication: FOETAL MALNUTRITION

REACTIONS (1)
  - Sepsis [Unknown]
